FAERS Safety Report 6275905-X (Version None)
Quarter: 2009Q3

REPORT INFORMATION
  Report Type: 
  Country: None (occurrence: None)
  Receive Date: 20090721
  Receipt Date: 20090427
  Transmission Date: 20100115
  Serious: No
  Sender: FDA-Public Use
  Company Number: US-BAUSCH-2009BL001956

PATIENT
  Age: 50 Year
  Sex: Female

DRUGS (4)
  1. TOBRAMYCIN AND DEXAMETHASONE OPHTHALMIC SUSPENSION USP 0.3%/0.1% [Suspect]
     Indication: EYE INFLAMMATION
     Route: 047
     Dates: start: 20090313, end: 20090315
  2. TOBRAMYCIN AND DEXAMETHASONE OPHTHALMIC SUSPENSION USP 0.3%/0.1% [Suspect]
     Indication: EYELID OEDEMA
     Route: 047
     Dates: start: 20090313, end: 20090315
  3. NASONEX [Concomitant]
     Indication: DRUG USE FOR UNKNOWN INDICATION
     Route: 045
  4. ZYRTEC [Concomitant]
     Indication: DRUG USE FOR UNKNOWN INDICATION
     Route: 048

REACTIONS (1)
  - SKIN DISCOLOURATION [None]
